FAERS Safety Report 5972750-7 (Version None)
Quarter: 2008Q4

REPORT INFORMATION
  Report Type: 
  Country: None (occurrence: None)
  Receive Date: 20081126
  Receipt Date: 20081126
  Transmission Date: 20090506
  Serious: Yes (Life-Threatening)
  Sender: FDA-Public Use
  Company Number: None

PATIENT
  Age: 57 Year
  Sex: Male
  Weight: 91.61 kg

DRUGS (1)
  1. FENTANYL 0.05 MG/ML [Suspect]
     Dates: start: 20080416, end: 20080416

REACTIONS (1)
  - CARDIO-RESPIRATORY ARREST [None]
